FAERS Safety Report 19509148 (Version 1)
Quarter: 2021Q3

REPORT INFORMATION
  Report Type: Other
  Country: CA (occurrence: CA)
  Receive Date: 20210709
  Receipt Date: 20210709
  Transmission Date: 20211014
  Serious: Yes (Other)
  Sender: FDA-Public Use
  Company Number: CA-APOTEX-2021AP015305

PATIENT
  Sex: Male

DRUGS (4)
  1. PONATINIB [Concomitant]
     Active Substance: PONATINIB
     Indication: PHILADELPHIA POSITIVE CHRONIC MYELOID LEUKAEMIA
     Dosage: UNK
     Route: 065
  2. BOSULIF [Concomitant]
     Active Substance: BOSUTINIB MONOHYDRATE
     Indication: PHILADELPHIA POSITIVE CHRONIC MYELOID LEUKAEMIA
     Dosage: 400 MILLIGRAM, QD
     Route: 048
  3. DASATINIB. [Suspect]
     Active Substance: DASATINIB
     Indication: PHILADELPHIA POSITIVE CHRONIC MYELOID LEUKAEMIA
     Dosage: UNK
     Route: 065
  4. NILOTINIB [Concomitant]
     Active Substance: NILOTINIB
     Indication: PHILADELPHIA POSITIVE CHRONIC MYELOID LEUKAEMIA
     Dosage: UNK
     Route: 065

REACTIONS (2)
  - Arteriosclerosis [Unknown]
  - Chronic obstructive pulmonary disease [Unknown]
